FAERS Safety Report 8254869-3 (Version None)
Quarter: 2012Q1

REPORT INFORMATION
  Report Type: 
  Country: None (occurrence: None)
  Receive Date: 20120329
  Receipt Date: 20120314
  Transmission Date: 20120608
  Serious: Yes (Death)
  Sender: FDA-Public Use
  Company Number: 2012-127

PATIENT
  Age: 29 Year
  Sex: Male

DRUGS (1)
  1. FAZACLO ODT [Suspect]
     Dosage: 200 - 600 MG, ORAL
     Route: 048
     Dates: start: 20090210, end: 20120312

REACTIONS (1)
  - ROAD TRAFFIC ACCIDENT [None]
